FAERS Safety Report 5377190-X (Version None)
Quarter: 2007Q2

REPORT INFORMATION
  Report Type: 
  Country: None (occurrence: None)
  Receive Date: 20070530
  Receipt Date: 20070228
  Transmission Date: 20071010
  Serious: No
  Sender: FDA-Public Use
  Company Number: 2007PV030834

PATIENT
  Age: 76 Year
  Sex: Male

DRUGS (10)
  1. BYETTA [Suspect]
     Indication: DIABETES MELLITUS NON-INSULIN-DEPENDENT
     Dosage: 10 MCG; BID; SC; 5 MCG;BID; SC; 10 MCG; BID; SC; 5 MCG; BID; SC; 5 MCG; BID; SC
     Route: 058
     Dates: start: 20060501, end: 20070101
  2. BYETTA [Suspect]
     Indication: DIABETES MELLITUS NON-INSULIN-DEPENDENT
     Dosage: 10 MCG; BID; SC; 5 MCG;BID; SC; 10 MCG; BID; SC; 5 MCG; BID; SC; 5 MCG; BID; SC
     Route: 058
     Dates: start: 20060801, end: 20070101
  3. BYETTA [Suspect]
     Indication: DIABETES MELLITUS NON-INSULIN-DEPENDENT
     Dosage: 10 MCG; BID; SC; 5 MCG;BID; SC; 10 MCG; BID; SC; 5 MCG; BID; SC; 5 MCG; BID; SC
     Route: 058
     Dates: start: 20060901, end: 20070201
  4. BYETTA [Suspect]
     Indication: DIABETES MELLITUS NON-INSULIN-DEPENDENT
     Dosage: 10 MCG; BID; SC; 5 MCG;BID; SC; 10 MCG; BID; SC; 5 MCG; BID; SC; 5 MCG; BID; SC
     Route: 058
     Dates: start: 20070101
  5. BYETTA [Suspect]
     Indication: DIABETES MELLITUS NON-INSULIN-DEPENDENT
     Dosage: 10 MCG; BID; SC; 5 MCG;BID; SC; 10 MCG; BID; SC; 5 MCG; BID; SC; 5 MCG; BID; SC
     Route: 058
     Dates: start: 20070201
  6. METFORMIN HCL [Concomitant]
  7. INSULIN [Concomitant]
  8. INSULIN [Concomitant]
  9. METFORMIN HCL [Concomitant]
  10. NEXIUM [Concomitant]

REACTIONS (7)
  - BLOOD GLUCOSE INCREASED [None]
  - DIARRHOEA [None]
  - DRUG EFFECT DECREASED [None]
  - FLATULENCE [None]
  - NAUSEA [None]
  - VOMITING [None]
  - WEIGHT DECREASED [None]
